FAERS Safety Report 7276560-2 (Version None)
Quarter: 2011Q1

REPORT INFORMATION
  Report Type: 
  Country: None (occurrence: None)
  Receive Date: 20110204
  Receipt Date: 20110128
  Transmission Date: 20110831
  Serious: Yes (Death, Hospitalization, Other)
  Sender: FDA-Public Use
  Company Number: US-PFIZER INC-2010146063

PATIENT
  Sex: Male

DRUGS (3)
  1. TOPAMAX [Concomitant]
     Indication: CONVULSION
     Dosage: UNK
     Dates: start: 19890101, end: 20100101
  2. CHANTIX [Suspect]
     Indication: SMOKING CESSATION THERAPY
     Dosage: 0.5 MG/ 1MG
     Dates: start: 20070901, end: 20071001
  3. TIAGABINE [Concomitant]
     Indication: CONVULSION
     Dosage: UNK
     Dates: start: 19890101, end: 20100101

REACTIONS (14)
  - FALL [None]
  - FATIGUE [None]
  - INSOMNIA [None]
  - EPILEPSY [None]
  - AGGRESSION [None]
  - DEPRESSION [None]
  - SUBDURAL HAEMORRHAGE [None]
  - SUICIDE ATTEMPT [None]
  - CONFUSIONAL STATE [None]
  - AGITATION [None]
  - PANIC ATTACK [None]
  - ANXIETY [None]
  - INTENTIONAL OVERDOSE [None]
  - DELUSION [None]
